FAERS Safety Report 5003006-7 (Version None)
Quarter: 2006Q2

REPORT INFORMATION
  Report Type: 
  Country: None (occurrence: None)
  Receive Date: 20060516
  Receipt Date: 20060505
  Transmission Date: 20061013
  Serious: Yes (Hospitalization, Other)
  Sender: FDA-Public Use
  Company Number: US-MERCK-0605USA01558

PATIENT
  Age: 57 Year
  Sex: Female
  Weight: 82 kg

DRUGS (9)
  1. IBUPROFEN [Concomitant]
     Route: 065
  2. VASOTEC [Concomitant]
     Route: 065
  3. THEO-24 [Concomitant]
     Route: 065
  4. ASPIRIN [Concomitant]
     Route: 065
  5. ACTOS [Concomitant]
     Route: 065
  6. METFORMIN [Concomitant]
     Route: 065
  7. XANAX [Concomitant]
     Route: 065
  8. PAXIL [Concomitant]
     Route: 065
  9. VIOXX [Suspect]
     Indication: ARTHRITIS
     Route: 048
     Dates: start: 20000925, end: 20040901

REACTIONS (5)
  - ASTHMA [None]
  - CAROTID ARTERY OCCLUSION [None]
  - HEART RATE IRREGULAR [None]
  - NEPHROLITHIASIS [None]
  - SILENT MYOCARDIAL INFARCTION [None]
